FAERS Safety Report 11796274 (Version 2)
Quarter: 2015Q4

REPORT INFORMATION
  Report Type: Spontaneous
  Country: JP (occurrence: JP)
  Receive Date: 20151203
  Receipt Date: 20151218
  Transmission Date: 20160305
  Serious: Yes (Hospitalization, Other)
  Sender: FDA-Public Use
  Company Number: PHJP2015JP021079

PATIENT
  Age: 90 Year
  Sex: Female

DRUGS (2)
  1. COSENTYX [Suspect]
     Active Substance: SECUKINUMAB
     Indication: PSORIASIS
     Dosage: 300 MG, UNK
     Route: 058
     Dates: start: 20151002
  2. COSENTYX [Suspect]
     Active Substance: SECUKINUMAB
     Indication: DERMATITIS EXFOLIATIVE
     Dosage: 300 MG, UNK
     Route: 058
     Dates: start: 20151030

REACTIONS (4)
  - Psoriasis [Unknown]
  - Liver function test abnormal [Unknown]
  - Dermatitis exfoliative [Unknown]
  - Off label use [Unknown]

NARRATIVE: CASE EVENT DATE: 201511
